FAERS Safety Report 10206302 (Version 2)
Quarter: 2014Q2

REPORT INFORMATION
  Report Type: Spontaneous
  Country: US (occurrence: US)
  Receive Date: 20140530
  Receipt Date: 20140624
  Transmission Date: 20141212
  Serious: Yes (Hospitalization)
  Sender: FDA-Public Use
  Company Number: US-B.I. PHARMACEUTICALS,INC./RIDGEFIELD-2014-BI-22453BP

PATIENT
  Sex: Female
  Weight: 51 kg

DRUGS (11)
  1. ATROVENT INHALATION SOLUTION [Suspect]
     Indication: EMPHYSEMA
     Dosage: 136 MG
     Route: 055
     Dates: start: 2003
  2. ATROVENT INHALATION SOLUTION [Suspect]
     Dosage: 136 MCG
     Route: 055
     Dates: start: 2006, end: 20140618
  3. COMBIVENT [Suspect]
     Indication: EMPHYSEMA
     Dosage: DOSE PER APPLICATION :18MCG /103 MCG
     Route: 055
  4. SPIRIVA [Suspect]
     Indication: EMPHYSEMA
     Dosage: 18 MCG
     Route: 055
     Dates: start: 2004, end: 2006
  5. IRON [Concomitant]
     Indication: ANAEMIA
     Dosage: 84 MG
     Route: 048
  6. MULTIVITAMINS [Concomitant]
     Indication: ROUTINE HEALTH MAINTENANCE
     Route: 048
  7. PRO AIR [Concomitant]
     Indication: EMPHYSEMA
     Dosage: FORMULATION: INHALATION AEROSOL; DOSE PER APPLICATION:2 INHALATIONS, DAILY DOSE: 12 INHALATIONS
     Route: 055
     Dates: start: 2006
  8. PULMICORT [Concomitant]
     Indication: EMPHYSEMA
     Dosage: FORMULATION: INHALATION AEROSOL; DAILY DOSE: 2 INHALATIONS
     Route: 055
     Dates: start: 2006
  9. OMEPRAZOLE [Concomitant]
     Indication: GASTROOESOPHAGEAL REFLUX DISEASE
     Dosage: 20 MG
     Route: 048
  10. FERROUS SULFATE [Concomitant]
     Dosage: 650 MG
     Route: 048
  11. NIACIN [Concomitant]
     Dosage: 500 MG
     Route: 048

REACTIONS (5)
  - Emphysema [Recovered/Resolved]
  - Emphysema [Not Recovered/Not Resolved]
  - Pulmonary function test decreased [Not Recovered/Not Resolved]
  - Peripheral swelling [Not Recovered/Not Resolved]
  - Drug ineffective [Unknown]
